FAERS Safety Report 9299238 (Version 1)
Quarter: 2013Q2

REPORT INFORMATION
  Report Type: Spontaneous
  Country: GB (occurrence: GB)
  Receive Date: 20130520
  Receipt Date: 20130520
  Transmission Date: 20140414
  Serious: Yes (Other)
  Sender: FDA-Public Use
  Company Number: GB-TEVA-404747ISR

PATIENT
  Age: 62 Year
  Sex: Male
  Weight: 77 kg

DRUGS (7)
  1. METFORMIN [Suspect]
     Indication: DIABETES MELLITUS
     Dosage: 500 MILLIGRAM DAILY;
     Route: 048
     Dates: start: 20130228, end: 20130412
  2. ASPIRIN [Concomitant]
  3. RAMIPRIL [Concomitant]
  4. BISOPROLOL [Concomitant]
  5. PRAVASTATIN [Concomitant]
  6. AMLODIPINE [Concomitant]
  7. OMEPRAZOLE [Concomitant]

REACTIONS (1)
  - Facial spasm [Recovered/Resolved]
